FAERS Safety Report 24453384 (Version 2)
Quarter: 2024Q4

REPORT INFORMATION
  Report Type: Report from Study
  Country: US (occurrence: US)
  Receive Date: 20241017
  Receipt Date: 20241018
  Transmission Date: 20250115
  Serious: No
  Sender: ROCHE
  Company Number: US-ROCHE-3385955

PATIENT
  Age: 63 Year
  Sex: Male
  Weight: 82.0 kg

DRUGS (1)
  1. RITUXAN [Suspect]
     Active Substance: RITUXIMAB
     Indication: Multifocal motor neuropathy
     Dosage: DATE OF RITUXIMAB TREATMENT, 18/FEB/2022, 20/MAY/2022, 29/JUL/2022, 14/OCT/2022,
     Route: 041

REACTIONS (2)
  - Off label use [Unknown]
  - No adverse event [Unknown]
